FAERS Safety Report 24942245 (Version 1)
Quarter: 2025Q1

REPORT INFORMATION
  Report Type: Spontaneous
  Country: GB (occurrence: GB)
  Receive Date: 20250207
  Receipt Date: 20250207
  Transmission Date: 20250408
  Serious: Yes (Other)
  Sender: TEVA
  Company Number: GB-MHRA-TPP47202160C9963245YC1738253856763

PATIENT
  Age: 46 Year
  Sex: Female
  Weight: 51 kg

DRUGS (4)
  1. RAMIPRIL [Suspect]
     Active Substance: RAMIPRIL
     Indication: Ill-defined disorder
     Route: 065
     Dates: start: 20250130
  2. LOSARTAN [Concomitant]
     Active Substance: LOSARTAN
     Indication: Ill-defined disorder
     Dosage: DAILY DOSE: 1 DOSAGE FORM DAILY
     Route: 065
     Dates: start: 20250130
  3. AMOXICILLIN\CLAVULANATE POTASSIUM [Concomitant]
     Active Substance: AMOXICILLIN\CLAVULANATE POTASSIUM
     Indication: Ill-defined disorder
     Route: 065
     Dates: start: 20241224, end: 20241231
  4. RAMIPRIL [Concomitant]
     Active Substance: RAMIPRIL
     Indication: Ill-defined disorder
     Dosage: DAILY DOSE: 1 DOSAGE FORM DAILY
     Route: 065
     Dates: start: 20240125

REACTIONS (1)
  - Cluster headache [Recovering/Resolving]

NARRATIVE: CASE EVENT DATE: 20250130
